FAERS Safety Report 23605222 (Version 8)
Quarter: 2025Q3

REPORT INFORMATION
  Report Type: Spontaneous
  Country: US (occurrence: US)
  Receive Date: 20240307
  Receipt Date: 20250812
  Transmission Date: 20251021
  Serious: No
  Sender: DAIICHI
  Company Number: US-DAIICHI SANKYO, INC.-DSU-2024-110256AA

PATIENT
  Sex: Male

DRUGS (4)
  1. TURALIO [Suspect]
     Active Substance: PEXIDARTINIB HYDROCHLORIDE
     Indication: Connective tissue neoplasm
     Dosage: 250 MG, BID ((2 CAPSULES BY MOUTH TWICE DAILY (AM+PM)))
     Route: 048
     Dates: start: 20240125
  2. TURALIO [Suspect]
     Active Substance: PEXIDARTINIB HYDROCHLORIDE
     Indication: Soft tissue neoplasm
     Dosage: 125 MG, BID ((2 CAPSULES BY MOUTH TWICE DAILY (AM+PM)))
     Route: 048
     Dates: start: 20240125
  3. NICODERM CQ [Concomitant]
     Active Substance: NICOTINE
     Indication: Product used for unknown indication
     Route: 065
  4. NICORETTE [Concomitant]
     Active Substance: NICOTINE
     Indication: Product used for unknown indication
     Route: 065

REACTIONS (8)
  - Cardiac pacemaker replacement [Recovered/Resolved]
  - Headache [Recovered/Resolved]
  - Photosensitivity reaction [Recovered/Resolved]
  - Treatment noncompliance [Unknown]
  - Therapy cessation [Unknown]
  - Product dose omission issue [Recovered/Resolved]
  - Product dose omission issue [Not Recovered/Not Resolved]
  - Drug ineffective [Not Recovered/Not Resolved]
